FAERS Safety Report 9094175 (Version 3)
Quarter: 2013Q1

REPORT INFORMATION
  Report Type: Report from Study
  Country: FR (occurrence: FR)
  Receive Date: 20130219
  Receipt Date: 20130301
  Transmission Date: 20140127
  Serious: Yes (Other)
  Sender: FDA-Public Use
  Company Number: FR-ASTRAZENECA-2013SE07834

PATIENT
  Age: 52 Year
  Sex: Female

DRUGS (5)
  1. SYMBICORT TBH [Suspect]
     Indication: ASTHMA
     Dosage: 400/12 MCG, TWO TIMES A DAY
     Route: 055
  2. SYMBICORT TBH [Suspect]
     Indication: ASTHMA
     Dosage: 320/9  MCG, TWO TIMES A DAY
     Route: 055
  3. BECOTIDE [Concomitant]
  4. VENTOLINE [Concomitant]
  5. SINGULAIR [Concomitant]

REACTIONS (4)
  - Asthma [Recovering/Resolving]
  - Sleep disorder due to a general medical condition [Unknown]
  - Activities of daily living impaired [Unknown]
  - Cough [Unknown]
